FAERS Safety Report 11552070 (Version 1)
Quarter: 2015Q3

REPORT INFORMATION
  Report Type: Spontaneous
  Country: US (occurrence: US)
  Receive Date: 20150903
  Receipt Date: 20150903
  Transmission Date: 20151125
  Serious: No
  Sender: FDA-Public Use
  Company Number: US-ELI_LILLY_AND_COMPANY-US201006003559

PATIENT
  Age: 87 Year
  Sex: Male

DRUGS (5)
  1. HUMALOG [Suspect]
     Active Substance: INSULIN LISPRO
     Indication: DIABETES MELLITUS
     Dosage: 5 U, EACH MORNING
     Dates: start: 20100511, end: 20100610
  2. TRELSTAR [Concomitant]
     Active Substance: TRIPTORELIN PAMOATE
     Dosage: UNK, OTHER
  3. NOVOLOG [Concomitant]
     Active Substance: INSULIN ASPART
     Dosage: 5 U, 3/D
     Dates: start: 20100610
  4. HUMALOG [Suspect]
     Active Substance: INSULIN LISPRO
     Dosage: 8 U, EACH EVENING
     Dates: start: 20100511
  5. LANTUS SOLOSTAR [Concomitant]
     Active Substance: INSULIN GLARGINE
     Indication: TYPE 2 DIABETES MELLITUS
     Dosage: 8 U, DAILY (1/D)
     Dates: start: 20100511

REACTIONS (3)
  - Fluid retention [Recovered/Resolved]
  - Oedema peripheral [Recovered/Resolved]
  - Weight increased [Not Recovered/Not Resolved]

NARRATIVE: CASE EVENT DATE: 20100511
